FAERS Safety Report 6608893-4 (Version None)
Quarter: 2010Q1

REPORT INFORMATION
  Report Type: 
  Country: None (occurrence: None)
  Receive Date: 20100301
  Receipt Date: 20100225
  Transmission Date: 20100710
  Serious: Yes (Other)
  Sender: FDA-Public Use
  Company Number: JP-BAXTER-2008BH005450

PATIENT
  Age: 69 Year
  Sex: Female
  Weight: 44 kg

DRUGS (7)
  1. SORBITOL 3% IN PLASTIC CONTAINER [Suspect]
     Indication: WOUND TREATMENT
     Route: 065
  2. BUPIVACAINE HCL [Concomitant]
     Indication: ANAESTHESIA
     Route: 048
  3. PENTAZOCINE [Concomitant]
     Indication: ANALGESIC THERAPY
     Route: 042
  4. METOCLOPRAMIDE HYDROCHLORIDE [Concomitant]
     Indication: DRUG USE FOR UNKNOWN INDICATION
     Route: 042
  5. SEVOFLURANE [Concomitant]
     Indication: ANAESTHESIA
     Route: 055
  6. NITROUS OXIDE [Concomitant]
     Indication: ANAESTHESIA
     Route: 055
  7. OXYGEN [Concomitant]
     Indication: ANAESTHESIA
     Route: 055

REACTIONS (5)
  - CERVIX HAEMORRHAGE UTERINE [None]
  - FLUID RETENTION [None]
  - HAEMOGLOBIN DECREASED [None]
  - HYPONATRAEMIA [None]
  - UTERINE CERVICAL LACERATION [None]
